FAERS Safety Report 20097276 (Version 2)
Quarter: 2021Q4

REPORT INFORMATION
  Report Type: Spontaneous
  Country: US (occurrence: None)
  Receive Date: 20211122
  Receipt Date: 20211202
  Transmission Date: 20220303
  Serious: No
  Sender: FDA-Public Use
  Company Number: 2021A821138

PATIENT
  Sex: Male

DRUGS (3)
  1. OLAPARIB [Suspect]
     Active Substance: OLAPARIB
     Route: 048
     Dates: start: 202102, end: 202105
  2. LEUPROLIDE [Concomitant]
     Active Substance: LEUPROLIDE
     Dates: start: 201602
  3. DOCETAXEL [Concomitant]
     Active Substance: DOCETAXEL
     Dosage: (6 CYCLES): DATES UNKNOWN, BUT SOMETIME BETWEEN 2016-2017

REACTIONS (1)
  - No adverse event [Unknown]
